FAERS Safety Report 7465020-1 (Version None)
Quarter: 2011Q2

REPORT INFORMATION
  Report Type: 
  Country: None (occurrence: None)
  Receive Date: 20110509
  Receipt Date: 20110428
  Transmission Date: 20111010
  Serious: Yes (Death)
  Sender: FDA-Public Use
  Company Number: US-JNJFOC-20110500668

PATIENT
  Age: 31 Year
  Sex: Male

DRUGS (4)
  1. MULTIPLE MEDICATIONS (UNSPECIFIED) [Suspect]
     Indication: PRODUCT USED FOR UNKNOWN INDICATION
     Route: 065
  2. FENTANYL [Suspect]
     Indication: BACK PAIN
     Route: 062
  3. PROZAC [Concomitant]
     Indication: PRODUCT USED FOR UNKNOWN INDICATION
     Route: 065
  4. MUSCLE RELAXANTS (NOS) [Concomitant]
     Indication: BACK PAIN
     Route: 065

REACTIONS (3)
  - WITHDRAWAL SYNDROME [None]
  - MULTIPLE DRUG OVERDOSE [None]
  - DRUG DOSE OMISSION [None]
